FAERS Safety Report 15848258 (Version 6)
Quarter: 2020Q2

REPORT INFORMATION
  Report Type: Spontaneous
  Country: US (occurrence: US)
  Receive Date: 20190121
  Receipt Date: 20200409
  Transmission Date: 20200713
  Serious: Yes (Hospitalization, Other)
  Sender: FDA-Public Use
  Company Number: US-PFIZER INC-2016538223

PATIENT
  Age: 70 Year
  Sex: Female
  Weight: 86 kg

DRUGS (23)
  1. ZETIA [Concomitant]
     Active Substance: EZETIMIBE
     Dosage: 10 MG, DAILY
  2. CREON [Concomitant]
     Active Substance: PANCRELIPASE AMYLASE\PANCRELIPASE LIPASE\PANCRELIPASE PROTEASE
     Dosage: 6000 IU, 2X/DAY (AT MEALS)
  3. CENTRUM SILVER WOMEN 50+ [Concomitant]
     Active Substance: MINERALS\VITAMINS
     Dosage: 1 DF, DAILY
  4. ATIVAN [Concomitant]
     Active Substance: LORAZEPAM
     Dosage: 1 MG, AS NEEDED (1 TABLET NIGHTLY AT BEDTIME AS NEEDED, HAVE NOT USED MUCH OF LATE)
  5. HUMALOG [Concomitant]
     Active Substance: INSULIN LISPRO
     Indication: DIABETES MELLITUS
     Dosage: 2 IU, AS NEEDED (2 UNITS FOR EVERY 50 OVER 150 SLIDING SCALE AS NEEDED FOLLOWING EPIDURALS)
     Dates: start: 201910
  6. FIBER ADVANCE [Concomitant]
     Dosage: 2 DF, DAILY (2 GUMMIES DAILY/4 GR. FIBER)
  7. GLIMEPIRIDE. [Concomitant]
     Active Substance: GLIMEPIRIDE
     Dosage: 0.5 DF, DAILY (1/2 TABLET DAILY)
  8. TRENTAL [Concomitant]
     Active Substance: PENTOXIFYLLINE
     Dosage: 400 MG, DAILY
  9. NEXIUM [Concomitant]
     Active Substance: ESOMEPRAZOLE MAGNESIUM
     Dosage: UNK, DAILY (1 TO 2 CAPSULES DAILY)
  10. ASPIRIN 81 [Concomitant]
     Active Substance: ASPIRIN
     Dosage: 81 MG, DAILY
  11. LYRICA [Suspect]
     Active Substance: PREGABALIN
     Indication: DIABETIC NEUROPATHY
     Dosage: 150 MG, 2X/DAY
     Route: 048
  12. LYRICA [Suspect]
     Active Substance: PREGABALIN
     Indication: NEUROPATHY PERIPHERAL
     Dosage: 150 MG, 2X/DAY
     Route: 048
  13. TRICOR [Concomitant]
     Active Substance: FENOFIBRATE
     Dosage: 48 MG, DAILY
  14. LYRICA [Suspect]
     Active Substance: PREGABALIN
     Indication: FIBROMYALGIA
     Dosage: 150 MG, 2X/DAY
     Route: 048
  15. FOLIC ACID. [Concomitant]
     Active Substance: FOLIC ACID
     Dosage: 400 UG, DAILY
  16. ONDANSETRON [Concomitant]
     Active Substance: ONDANSETRON
     Indication: NAUSEA
     Dosage: 1 DF, AS NEEDED (1 TABLET DAILY AS NEEDED)
  17. CIPROFLOXACIN. [Concomitant]
     Active Substance: CIPROFLOXACIN
     Dosage: 250 MG, 2X/DAY
  18. LEVOTHYROXINE. [Concomitant]
     Active Substance: LEVOTHYROXINE
     Dosage: 0.1 MG, DAILY
  19. ACTOS [Concomitant]
     Active Substance: PIOGLITAZONE HYDROCHLORIDE
     Dosage: 30 MG, DAILY
  20. STOOL SOFTENER (DOCUSATE) [Concomitant]
     Active Substance: DOCUSATE
     Dosage: 100 MG, 2X/DAY
  21. VITAMIN D3 [Concomitant]
     Active Substance: CHOLECALCIFEROL
     Dosage: 1000 IU, DAILY
  22. HYDROCODONE/ACETAMINOPHEN [Concomitant]
     Active Substance: ACETAMINOPHEN\HYDROCODONE
     Indication: PAIN
     Dosage: 1 DF, 2X/DAY (HYDROCODONE: 5MG; ACETAMINOPHEN: 325 MG/1 IN AM + 1 AT BED)
  23. LANTUS [Concomitant]
     Active Substance: INSULIN GLARGINE
     Dosage: UNK
     Dates: start: 201909

REACTIONS (14)
  - Feeling abnormal [Unknown]
  - Sinusitis [Recovering/Resolving]
  - Visual impairment [Unknown]
  - Drug hypersensitivity [Unknown]
  - Cerebrovascular accident [Unknown]
  - Bronchitis [Recovering/Resolving]
  - Weight increased [Unknown]
  - Therapeutic response unexpected [Unknown]
  - Pre-existing condition improved [Unknown]
  - Memory impairment [Not Recovered/Not Resolved]
  - Laryngitis [Recovering/Resolving]
  - Periarthritis [Unknown]
  - Ankle fracture [Recovered/Resolved]
  - Weight decreased [Unknown]

NARRATIVE: CASE EVENT DATE: 2016
